FAERS Safety Report 13145665 (Version 30)
Quarter: 2018Q4

REPORT INFORMATION
  Report Type: Spontaneous
  Country: US (occurrence: US)
  Receive Date: 20170124
  Receipt Date: 20181221
  Transmission Date: 20190204
  Serious: Yes (Hospitalization, Other)
  Sender: FDA-Public Use
  Company Number: US-ACTELION-A-NJ2017-148873

PATIENT
  Age: 48 Year
  Sex: Female
  Weight: 106.12 kg

DRUGS (7)
  1. OPSUMIT [Suspect]
     Active Substance: MACITENTAN
     Dosage: 10 MG, QD
     Route: 048
  2. REMODULIN [Suspect]
     Active Substance: TREPROSTINIL
     Indication: PRODUCT USED FOR UNKNOWN INDICATION
     Dosage: UNK
     Route: 065
     Dates: start: 2016
  3. OPSUMIT [Suspect]
     Active Substance: MACITENTAN
     Indication: PULMONARY HYPERTENSION
     Dosage: 10 MG, QD
     Route: 048
     Dates: start: 20140407
  4. ADEMPAS [Concomitant]
     Active Substance: RIOCIGUAT
  5. REMODULIN [Suspect]
     Active Substance: TREPROSTINIL
     Dosage: 83 NG, UNK
     Route: 065
  6. REMODULIN [Suspect]
     Active Substance: TREPROSTINIL
     Dosage: 68 NG/KG, PER MIN
     Route: 065
  7. XARELTO [Concomitant]
     Active Substance: RIVAROXABAN

REACTIONS (41)
  - Vomiting [Unknown]
  - Influenza like illness [Unknown]
  - Asthenia [Unknown]
  - Fatigue [Unknown]
  - Back pain [Unknown]
  - Feeling abnormal [Unknown]
  - Palpitations [Unknown]
  - Hypersensitivity [Unknown]
  - Angioplasty [Unknown]
  - Oedema [Unknown]
  - Unevaluable event [Unknown]
  - Pulmonary hypertension [Unknown]
  - Pain in extremity [Unknown]
  - Bronchitis [Unknown]
  - Malaise [Unknown]
  - Device alarm issue [Unknown]
  - Arthralgia [Unknown]
  - Condition aggravated [Unknown]
  - Accidental overdose [Unknown]
  - Weight decreased [Unknown]
  - Abdominal pain [Unknown]
  - Decreased appetite [Unknown]
  - Lethargy [Unknown]
  - Lacrimation increased [Unknown]
  - Product administration error [Unknown]
  - Pain [Unknown]
  - Dyspnoea [Unknown]
  - Infusion site reaction [Unknown]
  - Catheter site haemorrhage [Unknown]
  - Nausea [Unknown]
  - Oropharyngeal pain [Unknown]
  - Abdominal pain upper [Not Recovered/Not Resolved]
  - Pain management [Unknown]
  - Device leakage [Unknown]
  - Pulmonary embolism [Unknown]
  - Diarrhoea [Unknown]
  - Device dislocation [Unknown]
  - Fluid overload [Unknown]
  - Complication associated with device [Unknown]
  - Incorrect drug administration rate [Unknown]
  - Gastroenteritis [Unknown]

NARRATIVE: CASE EVENT DATE: 2016
